FAERS Safety Report 7812112-0 (Version None)
Quarter: 2011Q4

REPORT INFORMATION
  Report Type: 
  Country: None (occurrence: None)
  Receive Date: 20111011
  Receipt Date: 20110930
  Transmission Date: 20120403
  Serious: Yes (Death, Hospitalization)
  Sender: FDA-Public Use
  Company Number: UTC-010771

PATIENT
  Age: 34 Year
  Sex: Male

DRUGS (3)
  1. REVATIO [Concomitant]
  2. REMODULIN [Suspect]
     Indication: COR PULMONALE CHRONIC
     Dosage: .138 TO .140 UG/KG (1 IN 1 MIN),INTRAVENOUS
     Route: 042
     Dates: start: 20070126
  3. DIURETICS (DIURETICS) [Concomitant]

REACTIONS (2)
  - GASTRIC ULCER [None]
  - FATIGUE [None]
